FAERS Safety Report 8456084-7 (Version None)
Quarter: 2012Q2

REPORT INFORMATION
  Report Type: 
  Country: None (occurrence: None)
  Receive Date: 20120621
  Receipt Date: 20120616
  Transmission Date: 20120825
  Serious: Yes (Other)
  Sender: FDA-Public Use
  Company Number: PHHY2012MX046489

PATIENT
  Sex: Female

DRUGS (9)
  1. ZOLEDRONOC ACID [Suspect]
     Indication: OSTEOPOROSIS
     Dosage: 5 MG/100 ML ONCE A YEAR
     Route: 042
     Dates: start: 20120524
  2. GLUCOSAMINE [Concomitant]
     Indication: HYPERTENSION
     Dosage: UNK UKN, UNK
  3. NEOBRON [Concomitant]
     Indication: HYPERTENSION
     Dosage: ONCE A DAY
  4. BONIVA [Concomitant]
     Indication: OSTEOPOROSIS
     Dosage: UNK UKN, UNK
     Dates: start: 20090101, end: 20100101
  5. CELOQUEN [Concomitant]
     Indication: HYPERTENSION
     Dosage: 0.5 DF, UNK
  6. AVALIDE [Concomitant]
     Dosage: 15 MG, UNK
  7. CLONAZEPAM [Concomitant]
     Dosage: 0.5 G, BY DAY
  8. OMEPRAZOLE [Concomitant]
     Indication: GASTRITIS
     Dosage: UNK UKN, UNK
  9. ALPRAZOLAM [Concomitant]
     Indication: DEPRESSION
     Dosage: UNK UKN, UNK

REACTIONS (6)
  - GAIT DISTURBANCE [None]
  - OEDEMA PERIPHERAL [None]
  - ORAL DISORDER [None]
  - PAIN IN EXTREMITY [None]
  - HYPOKINESIA [None]
  - SPEECH DISORDER [None]
